FAERS Safety Report 12834413 (Version 1)
Quarter: 2016Q4

REPORT INFORMATION
  Report Type: Spontaneous
  Country: DK (occurrence: DK)
  Receive Date: 20161010
  Receipt Date: 20161010
  Transmission Date: 20170207
  Serious: Yes (Other)
  Sender: FDA-Public Use
  Company Number: PHHY2016DK137145

PATIENT
  Age: 57 Year
  Sex: Female

DRUGS (1)
  1. METOPROLOL. [Suspect]
     Active Substance: METOPROLOL
     Indication: STRESS CARDIOMYOPATHY
     Route: 042

REACTIONS (2)
  - Circulatory collapse [Unknown]
  - Product use issue [Unknown]
